FAERS Safety Report 5922229-3 (Version None)
Quarter: 2008Q4

REPORT INFORMATION
  Report Type: 
  Country: None (occurrence: None)
  Receive Date: 20081017
  Receipt Date: 20081013
  Transmission Date: 20090506
  Serious: Yes (Other)
  Sender: FDA-Public Use
  Company Number: GB-JNJCH-2008019264

PATIENT
  Sex: Male

DRUGS (1)
  1. ROGAINE [Suspect]
     Indication: ALOPECIA
     Dosage: TEXT:UNSPECIFIED
     Route: 061
     Dates: start: 20071101, end: 20080101

REACTIONS (6)
  - APPLICATION SITE REACTION [None]
  - DERMATITIS [None]
  - DRY SKIN [None]
  - HYPERSENSITIVITY [None]
  - PRODUCT COUNTERFEIT [None]
  - SKIN DISORDER [None]
